FAERS Safety Report 7957377-X (Version None)
Quarter: 2011Q4

REPORT INFORMATION
  Report Type: 
  Country: None (occurrence: None)
  Receive Date: 20111205
  Receipt Date: 20111130
  Transmission Date: 20120403
  Serious: Yes (Death, Hospitalization, Other)
  Sender: FDA-Public Use
  Company Number: US-ABBOTT-11P-163-0731580-00

PATIENT
  Sex: Female
  Weight: 182.96 kg

DRUGS (7)
  1. IMODIUM [Concomitant]
     Indication: PRODUCT USED FOR UNKNOWN INDICATION
  2. HUMIRA [Suspect]
     Indication: COLITIS ULCERATIVE
  3. HUMIRA [Suspect]
     Indication: CROHN'S DISEASE
     Route: 058
     Dates: start: 20100301, end: 20110523
  4. CALCIUM CITRATE [Concomitant]
     Indication: PRODUCT USED FOR UNKNOWN INDICATION
     Dates: end: 20110501
  5. COLAZAL [Concomitant]
     Indication: PRODUCT USED FOR UNKNOWN INDICATION
     Dates: start: 20110315, end: 20110515
  6. PREDNISONE TAB [Concomitant]
     Indication: PRODUCT USED FOR UNKNOWN INDICATION
     Dosage: TAPER 5 MG EVERY 2 WEEKS
  7. MVI WITH IRON [Concomitant]
     Indication: PRODUCT USED FOR UNKNOWN INDICATION

REACTIONS (41)
  - SYNCOPE [None]
  - ACUTE CORONARY SYNDROME [None]
  - PSEUDOPOLYP [None]
  - HEAD INJURY [None]
  - TACHYCARDIA [None]
  - ARTHRITIS ENTEROPATHIC [None]
  - ABDOMINAL PAIN [None]
  - CHOLELITHIASIS [None]
  - LIVER DISORDER [None]
  - COLITIS [None]
  - SLEEP APNOEA SYNDROME [None]
  - HYPERTENSION [None]
  - NERVOUS SYSTEM DISORDER [None]
  - ANAEMIA [None]
  - FATIGUE [None]
  - DIZZINESS [None]
  - MUCOUS STOOLS [None]
  - ATELECTASIS [None]
  - ELECTROCARDIOGRAM ABNORMAL [None]
  - CROHN'S DISEASE [None]
  - NARCOLEPSY [None]
  - LOSS OF CONSCIOUSNESS [None]
  - RENAL CYST [None]
  - ILEAL STENOSIS [None]
  - RENAL NEOPLASM [None]
  - LUNG NEOPLASM [None]
  - DEATH [None]
  - LIGAMENT SPRAIN [None]
  - CHEST PAIN [None]
  - HAEMORRHAGE INTRACRANIAL [None]
  - HYPOXIA [None]
  - ORTHOSTATIC HYPOTENSION [None]
  - HEADACHE [None]
  - HAEMATOCHEZIA [None]
  - SPINAL OSTEOARTHRITIS [None]
  - LACERATION [None]
  - GASTROINTESTINAL STENOSIS [None]
  - EMPHYSEMA [None]
  - PULMONARY FIBROSIS [None]
  - SPLEEN DISORDER [None]
  - MYOCARDIAL INFARCTION [None]
